FAERS Safety Report 8559649-7 (Version None)
Quarter: 2012Q3

REPORT INFORMATION
  Report Type: 
  Country: None (occurrence: None)
  Receive Date: 20120802
  Receipt Date: 20120716
  Transmission Date: 20120928
  Serious: No
  Sender: FDA-Public Use
  Company Number: US-BAYER-2012-072142

PATIENT
  Age: 32 Year
  Sex: Male
  Weight: 129 kg

DRUGS (1)
  1. ALEVE (CAPLET) [Suspect]
     Indication: BACK PAIN
     Dosage: 6 DF, UNK
     Route: 048
     Dates: start: 20120716

REACTIONS (1)
  - FATIGUE [None]
